FAERS Safety Report 9432739 (Version 2)
Quarter: 2013Q3

REPORT INFORMATION
  Report Type: Spontaneous
  Country: US (occurrence: US)
  Receive Date: 20130729
  Receipt Date: 20130729
  Transmission Date: 20140515
  Serious: No
  Sender: FDA-Public Use
  Company Number: NXG-13-003

PATIENT
  Sex: Female

DRUGS (1)
  1. POLYETHYLENE GLYCOL 400 [Suspect]

REACTIONS (5)
  - Diarrhoea [None]
  - Flatulence [None]
  - Condition aggravated [None]
  - Product quality issue [None]
  - Intestinal obstruction [None]
